FAERS Safety Report 9619131 (Version 1)
Quarter: 2013Q4

REPORT INFORMATION
  Report Type: Spontaneous
  Country: US (occurrence: US)
  Receive Date: 20131014
  Receipt Date: 20131014
  Transmission Date: 20140711
  Serious: Yes (Death, Other)
  Sender: FDA-Public Use
  Company Number: US-PFIZER INC-2013292268

PATIENT
  Age: 56 Year
  Sex: 0

DRUGS (1)
  1. LYRICA [Suspect]
     Dosage: 150 MG

REACTIONS (1)
  - Death [Fatal]
